FAERS Safety Report 9114756 (Version 1)
Quarter: 2013Q1

REPORT INFORMATION
  Report Type: Spontaneous
  Country: JP (occurrence: None)
  Receive Date: 20130128
  Receipt Date: 20130128
  Transmission Date: 20140127
  Serious: Yes (Other)
  Sender: FDA-Public Use
  Company Number: JP-MACLEODS PHARMA-000057

PATIENT
  Age: 76 Year
  Sex: Female

DRUGS (1)
  1. DONEPEZIL (DONEPEZIL) [Suspect]
     Indication: DEMENTIA ALZHEIMER^S TYPE
     Dosage: 3.00-MG-1.0DAYS

REACTIONS (6)
  - Insomnia [None]
  - Agitation [None]
  - Irritability [None]
  - Restlessness [None]
  - Behavioural and psychiatric symptoms of dementia [None]
  - Condition aggravated [None]
